FAERS Safety Report 5345676-X (Version None)
Quarter: 2007Q2

REPORT INFORMATION
  Report Type: 
  Country: None (occurrence: None)
  Receive Date: 20070605
  Receipt Date: 20070528
  Transmission Date: 20071010
  Serious: Yes (Death)
  Sender: FDA-Public Use
  Company Number: IL-NOVOPROD-264008

PATIENT
  Age: 35 Year
  Sex: Male

DRUGS (2)
  1. NOVOSEVEN [Suspect]
     Indication: HAEMORRHAGE
     Dosage: 9.6 MG, UNK
     Dates: start: 20070516, end: 20070516
  2. BLOOD CELLS, PACKED HUMAN [Concomitant]
     Dosage: 18 U, UNK
     Dates: start: 20070516, end: 20070516

REACTIONS (1)
  - DEATH [None]
